FAERS Safety Report 6440062-3 (Version None)
Quarter: 2009Q4

REPORT INFORMATION
  Report Type: 
  Country: None (occurrence: None)
  Receive Date: 20091113
  Receipt Date: 20091030
  Transmission Date: 20100525
  Serious: Yes (Hospitalization)
  Sender: FDA-Public Use
  Company Number: DE-GENENTECH-293801

PATIENT
  Sex: Female

DRUGS (6)
  1. BEVACIZUMAB [Suspect]
     Indication: BREAST CANCER
     Dosage: 15 MG/KG, Q14D
     Route: 042
     Dates: start: 20090423, end: 20091008
  2. CAPECITABINE [Suspect]
     Indication: BREAST CANCER
     Dosage: 1000 MG/M2, BID
     Route: 048
     Dates: start: 20090423, end: 20091021
  3. VINORELBINE [Suspect]
     Indication: BREAST CANCER
     Dosage: 25 MG/M2, UNK
     Route: 042
     Dates: start: 20090423, end: 20091015
  4. METFORMIN HCL [Concomitant]
     Indication: DRUG USE FOR UNKNOWN INDICATION
     Dosage: UNK
  5. IBUPROFEN [Concomitant]
     Indication: DRUG USE FOR UNKNOWN INDICATION
     Dosage: UNK
  6. CAPTOPRIL [Concomitant]
     Indication: DRUG USE FOR UNKNOWN INDICATION
     Dosage: UNK

REACTIONS (1)
  - ULCER [None]
